FAERS Safety Report 6490037-3 (Version None)
Quarter: 2009Q4

REPORT INFORMATION
  Report Type: 
  Country: None (occurrence: None)
  Receive Date: 20091211
  Receipt Date: 20091207
  Transmission Date: 20100525
  Serious: Yes (Hospitalization, Other)
  Sender: FDA-Public Use
  Company Number: FR-ROCHE-657429

PATIENT
  Age: 66 Year
  Sex: Male

DRUGS (8)
  1. PEGASYS [Suspect]
     Indication: HEPATITIS C
     Route: 058
     Dates: start: 20090701, end: 20090901
  2. PEGASYS [Suspect]
     Dosage: REDUCED DOSE
     Route: 058
  3. COPEGUS [Suspect]
     Indication: HEPATITIS C
     Route: 048
     Dates: start: 20090701, end: 20090901
  4. CALCIUM/VITAMIN D [Concomitant]
     Indication: RENAL FAILURE
     Dosage: REPORTED AS VITAMINE D + CALCIUM
  5. NEORECORMON [Concomitant]
     Indication: RENAL FAILURE
  6. NEORECORMON [Concomitant]
     Dosage: INCREASE DOSE
  7. LOXEN [Concomitant]
     Indication: HYPERTENSION
  8. TAHOR [Concomitant]

REACTIONS (7)
  - ANAEMIA [None]
  - CARDIAC FAILURE [None]
  - CONFUSIONAL STATE [None]
  - ECZEMA [None]
  - LUNG NEOPLASM [None]
  - PLEURAL EFFUSION [None]
  - TACHYCARDIA [None]
